FAERS Safety Report 9105728 (Version 2)
Quarter: 2013Q1

REPORT INFORMATION
  Report Type: Spontaneous
  Country: US (occurrence: US)
  Receive Date: 20130220
  Receipt Date: 20130314
  Transmission Date: 20140127
  Serious: Yes (Other)
  Sender: FDA-Public Use
  Company Number: US-PFIZER INC-2013062987

PATIENT
  Age: 72 Year
  Sex: Female
  Weight: 61.22 kg

DRUGS (20)
  1. NEURONTIN [Suspect]
     Indication: EPILEPSY
     Dosage: 1200 MG (800MG, 1-1/2 TABLETS), 3X/DAY
     Route: 048
     Dates: start: 20120906, end: 201303
  2. SIMVASTATIN [Concomitant]
     Dosage: 40 MG, UNK
  3. METOPROLOL [Concomitant]
     Dosage: 12.5 MG, UNK
  4. VITAMIN D3 [Concomitant]
     Dosage: 1000 UNITS, 1X/DAY
     Route: 048
  5. BIOTIN [Concomitant]
     Dosage: 1000 UG, WEEKLY
     Route: 048
  6. CARDIZEM CD [Concomitant]
     Dosage: 120 MG, 1X/DAY
     Route: 048
  7. PRAVACHOL [Concomitant]
     Dosage: 40 MG, 1X/DAY
     Route: 048
  8. CELEXA [Concomitant]
     Dosage: 10 MG, 1X/DAY
     Route: 048
  9. GINKGO BILOBA EXTRACT [Concomitant]
     Dosage: 120 MG, 1X/DAY
     Route: 048
  10. ESTRACE VAGINAL CREAM [Concomitant]
     Dosage: 0.5 G, WEEKLY
     Route: 067
  11. BILBERRY PLUS [Concomitant]
     Dosage: 1000 MG, 1X/DAY
     Route: 048
  12. ONE-A-DAY [Concomitant]
     Dosage: UNK, 1X/DAY
     Route: 048
  13. VITAMIN C [Concomitant]
     Dosage: 250 MG, 2X/DAY
     Route: 048
  14. SYNTHROID [Concomitant]
     Dosage: 50 UG, 1X/DAY
     Route: 048
  15. CALCIUM CITRATE [Concomitant]
     Dosage: 400 MG, 2X/DAY
     Route: 048
  16. PRILOSEC [Concomitant]
     Dosage: 40 MG, 1X/DAY
     Route: 048
  17. VITAMIN B COMPLEX [Concomitant]
     Dosage: UNK, 1X/DAY
     Route: 048
  18. LUTEIN [Concomitant]
     Dosage: 20 MG, 1X/DAY
     Route: 048
  19. ASPIRIN [Concomitant]
     Dosage: 81 MG, 1X/DAY
     Route: 048
  20. LEVOTHROID [Concomitant]
     Dosage: 50 UG, 1X/DAY
     Route: 048

REACTIONS (4)
  - Convulsion [Unknown]
  - Amnesia [Unknown]
  - Feeling hot [Unknown]
  - Hangover [Unknown]
